FAERS Safety Report 16875798 (Version 1)
Quarter: 2019Q4

REPORT INFORMATION
  Report Type: Spontaneous
  Country: US (occurrence: US)
  Receive Date: 20191001
  Receipt Date: 20191001
  Transmission Date: 20200122
  Serious: Yes (Other)
  Sender: FDA-Public Use
  Company Number: None

PATIENT
  Age: 68 Year
  Sex: Male
  Weight: 85.5 kg

DRUGS (8)
  1. RED YEAST RICE [Concomitant]
     Active Substance: DIETARY SUPPLEMENT
  2. VITAMIN D [Concomitant]
     Active Substance: VITAMIN D NOS
  3. PROBIOTIC [Concomitant]
     Active Substance: PROBIOTICS NOS
  4. OMEGA 3 [Concomitant]
     Active Substance: OMEGA-3 FATTY ACIDS
  5. JUBLIA [Suspect]
     Active Substance: EFINACONAZOLE
     Indication: ONYCHOMYCOSIS
  6. VITAMIN C [Concomitant]
     Active Substance: ASCORBIC ACID
  7. FLAX OIL [Concomitant]
  8. CO-Q 10 [Concomitant]
     Active Substance: UBIDECARENONE

REACTIONS (2)
  - Granuloma skin [None]
  - Rash [None]

NARRATIVE: CASE EVENT DATE: 20181115
